FAERS Safety Report 6198240-7 (Version None)
Quarter: 2009Q2

REPORT INFORMATION
  Report Type: 
  Country: None (occurrence: None)
  Receive Date: 20090521
  Receipt Date: 20090512
  Transmission Date: 20091009
  Serious: Yes (Other)
  Sender: FDA-Public Use
  Company Number: US-AVENTIS-200914234US

PATIENT
  Age: 48 Year

DRUGS (1)
  1. KETEK [Suspect]
     Indication: SINUSITIS
     Dosage: DOSE: UNK

REACTIONS (5)
  - ALANINE AMINOTRANSFERASE INCREASED [None]
  - ASPARTATE AMINOTRANSFERASE INCREASED [None]
  - BLOOD LACTATE DEHYDROGENASE INCREASED [None]
  - EOSINOPHIL COUNT INCREASED [None]
  - LIVER FUNCTION TEST ABNORMAL [None]
